FAERS Safety Report 10845173 (Version 1)
Quarter: 2015Q1

REPORT INFORMATION
  Report Type: Report from Study
  Country: US (occurrence: US)
  Receive Date: 20150220
  Receipt Date: 20150220
  Transmission Date: 20150721
  Serious: No
  Sender: FDA-Public Use
  Company Number: US-ABBVIE-14P-163-1299060-00

PATIENT
  Age: 14 Year
  Sex: Male

DRUGS (4)
  1. PREDNISONE. [Concomitant]
     Active Substance: PREDNISONE
     Indication: PRODUCT USED FOR UNKNOWN INDICATION
     Route: 065
  2. HUMIRA [Suspect]
     Active Substance: ADALIMUMAB
     Indication: COLITIS ULCERATIVE
     Route: 058
     Dates: start: 20140930
  3. PREDNISONE. [Concomitant]
     Active Substance: PREDNISONE
  4. HUMIRA [Suspect]
     Active Substance: ADALIMUMAB
     Indication: COLITIS ULCERATIVE
     Route: 058
     Dates: start: 20141014

REACTIONS (4)
  - Diarrhoea [Unknown]
  - Abdominal pain upper [Not Recovered/Not Resolved]
  - Back pain [Unknown]
  - Abdominal distension [Unknown]

NARRATIVE: CASE EVENT DATE: 20140930
